FAERS Safety Report 25932100 (Version 1)
Quarter: 2025Q4

REPORT INFORMATION
  Report Type: Spontaneous
  Country: US (occurrence: US)
  Receive Date: 20251016
  Receipt Date: 20251016
  Transmission Date: 20260117
  Serious: No
  Sender: DR REDDYS
  Company Number: US-DRL-USA-USA/2025/10/015317

PATIENT
  Age: 77 Year
  Sex: Female

DRUGS (4)
  1. LIOTHYRONINE SODIUM [Suspect]
     Active Substance: LIOTHYRONINE SODIUM
     Indication: Thyroidectomy
     Dosage: TAKING HER MEDICATION IN THE MORNING ON  AN EMPTY STOMACH, WAITING THIRTY TO FORTY MINUTES BEFORE EA
     Dates: start: 1977
  2. LIOTHYRONINE SODIUM [Suspect]
     Active Substance: LIOTHYRONINE SODIUM
     Dosage: TAKING HER MEDICATION IN THE MORNING ON  AN EMPTY STOMACH, WAITING THIRTY TO FORTY MINUTES BEFORE EA
     Dates: start: 1977
  3. LIOTHYRONINE [Concomitant]
     Active Substance: LIOTHYRONINE
     Indication: Product used for unknown indication
  4. LEVOTHYROXINE [Concomitant]
     Active Substance: LEVOTHYROXINE
     Indication: Product used for unknown indication

REACTIONS (1)
  - Adverse drug reaction [Unknown]
